FAERS Safety Report 15899986 (Version 1)
Quarter: 2019Q1

REPORT INFORMATION
  Report Type: Spontaneous
  Country: AT (occurrence: AT)
  Receive Date: 20190201
  Receipt Date: 20190201
  Transmission Date: 20190417
  Serious: Yes (Other)
  Sender: FDA-Public Use
  Company Number: AT-TEVA-2019-AT-1006408

PATIENT
  Age: 31 Year
  Sex: Male

DRUGS (20)
  1. DOMINAL [Concomitant]
     Dates: start: 20181122
  2. NOVALGIN (METAMIZOLE SODIUM) [Concomitant]
     Active Substance: METAMIZOLE SODIUM
     Dosage: MAX. UP TO 3XDIE
     Dates: start: 20181212, end: 20181218
  3. ESCITALOPRAM [Concomitant]
     Active Substance: ESCITALOPRAM OXALATE
     Dates: start: 20181206, end: 20181218
  4. QUETIAPIN RETARD [Suspect]
     Active Substance: QUETIAPINE
     Route: 065
     Dates: start: 20181217
  5. QUETIAPIN RETARD [Suspect]
     Active Substance: QUETIAPINE
     Route: 065
     Dates: start: 20181207, end: 20181212
  6. PREGABALIN. [Concomitant]
     Active Substance: PREGABALIN
     Dates: start: 20181212
  7. PANTOLOC [Concomitant]
     Active Substance: PANTOPRAZOLE SODIUM
     Dates: start: 20181120
  8. ATORVASTATIN [Concomitant]
     Active Substance: ATORVASTATIN
     Dates: start: 20181217
  9. NICORETTE 25 MG/16H TRANSDERMALES PFLASTER [Concomitant]
     Dates: start: 20181207, end: 20190109
  10. ESCITALOPRAM [Concomitant]
     Active Substance: ESCITALOPRAM OXALATE
     Dates: start: 20181130, end: 20181205
  11. NICORETTE 15 MG/16H TRANSDERMALES PFLASTER [Concomitant]
     Dates: start: 201812
  12. RISPERDAL [Suspect]
     Active Substance: RISPERIDONE
     Route: 065
     Dates: start: 20181208
  13. PARACETAMOL [Concomitant]
     Active Substance: ACETAMINOPHEN
     Dosage: MAX. UP TO 2XDIE
     Dates: start: 20181206, end: 20181218
  14. TEMESTA [LORAZEPAM] [Concomitant]
     Active Substance: LORAZEPAM
     Dates: start: 20181120
  15. LOVENOX [Concomitant]
     Active Substance: ENOXAPARIN SODIUM
     Dates: start: 20181219, end: 20181225
  16. THROMBO ASS [Concomitant]
     Active Substance: ASPIRIN
     Dates: start: 20181120, end: 20181218
  17. LOVENOX [Concomitant]
     Active Substance: ENOXAPARIN SODIUM
     Dates: start: 20181117, end: 20181218
  18. QUETIAPIN RETARD [Suspect]
     Active Substance: QUETIAPINE
     Route: 065
     Dates: start: 20181213, end: 20181216
  19. RISPERDAL [Suspect]
     Active Substance: RISPERIDONE
     Dosage: INCREASING DOSES
     Route: 065
     Dates: start: 20181121, end: 20181207
  20. PREGABALIN. [Concomitant]
     Active Substance: PREGABALIN
     Dates: start: 20181210, end: 20181211

REACTIONS (1)
  - Pulmonary embolism [Recovered/Resolved]

NARRATIVE: CASE EVENT DATE: 20181218
